FAERS Safety Report 18735723 (Version 1)
Quarter: 2021Q1

REPORT INFORMATION
  Report Type: Spontaneous
  Country: US (occurrence: US)
  Receive Date: 20210113
  Receipt Date: 20210113
  Transmission Date: 20210419
  Serious: Yes (Other)
  Sender: FDA-Public Use
  Company Number: US-MYLANLABS-2021M1001650

PATIENT
  Age: 94 Year
  Sex: Female

DRUGS (4)
  1. QUETIAPINE. [Suspect]
     Active Substance: QUETIAPINE
     Dosage: 6.25 MILLIGRAM (AS NECESSARY)
     Route: 065
  2. QUETIAPINE. [Suspect]
     Active Substance: QUETIAPINE
     Indication: CHARLES BONNET SYNDROME
     Dosage: 12.5 MILLIGRAM, QD NIGHTLY
     Route: 065
  3. QUETIAPINE. [Suspect]
     Active Substance: QUETIAPINE
     Dosage: 25 MILLIGRAM (AS NECESSARY)
     Route: 065
  4. QUETIAPINE. [Suspect]
     Active Substance: QUETIAPINE
     Dosage: 50 MILLIGRAM, QD NIGHTLY
     Route: 065

REACTIONS (6)
  - Fall [Unknown]
  - Hip fracture [Unknown]
  - Somnolence [Unknown]
  - Therapy non-responder [Unknown]
  - Balance disorder [Unknown]
  - Off label use [Unknown]
